FAERS Safety Report 16962304 (Version 2)
Quarter: 2019Q4

REPORT INFORMATION
  Report Type: Spontaneous
  Country: US (occurrence: US)
  Receive Date: 20191025
  Receipt Date: 20191231
  Transmission Date: 20200122
  Serious: Yes (Death, Other)
  Sender: FDA-Public Use
  Company Number: US-PFIZER INC-2018500026

PATIENT
  Age: 37 Year
  Sex: Male
  Weight: 93 kg

DRUGS (10)
  1. COPPER [Concomitant]
     Active Substance: COPPER
     Dosage: 2 MG, 2X/DAY
  2. AVASTIN [Concomitant]
     Active Substance: BEVACIZUMAB
     Dosage: 3.5 MG/KG, UNK
  3. MIRTAZAPINE. [Concomitant]
     Active Substance: MIRTAZAPINE
     Dosage: 60 MG, 1X/DAY
  4. METOPROLOL. [Concomitant]
     Active Substance: METOPROLOL
     Dosage: 50 MG, 1X/DAY
  5. BUSPIRONE [Concomitant]
     Active Substance: BUSPIRONE HYDROCHLORIDE
     Dosage: 30 MG, 2X/DAY
  6. IBRANCE [Suspect]
     Active Substance: PALBOCICLIB
     Indication: BRAIN NEOPLASM
  7. TEMODAR [Concomitant]
     Active Substance: TEMOZOLOMIDE
     Dosage: 80 MG, 1X/DAY
  8. IBRANCE [Suspect]
     Active Substance: PALBOCICLIB
     Indication: BRAIN NEOPLASM MALIGNANT
     Dosage: 100 MG, UNK
  9. DISULFIRAM. [Concomitant]
     Active Substance: DISULFIRAM
     Dosage: 250 MG, 2X/DAY
  10. KEPPRA [Concomitant]
     Active Substance: LEVETIRACETAM
     Dosage: 1500 MG, 2X/DAY

REACTIONS (3)
  - Product use in unapproved indication [Unknown]
  - Off label use [Unknown]
  - Death [Fatal]

NARRATIVE: CASE EVENT DATE: 20190613
